FAERS Safety Report 9247716 (Version 1)
Quarter: 2013Q2

REPORT INFORMATION
  Report Type: Spontaneous
  Country: US (occurrence: None)
  Receive Date: 20130419
  Receipt Date: 20130419
  Transmission Date: 20140414
  Serious: No
  Sender: FDA-Public Use
  Company Number: None

PATIENT
  Age: 19 Year
  Sex: Female
  Weight: 63.5 kg

DRUGS (5)
  1. HYDROMORPHONE [Suspect]
     Indication: HEADACHE
     Dosage: Q4 PRN
     Route: 042
     Dates: start: 20130126
  2. NORCO [Concomitant]
  3. VANCO [Concomitant]
  4. ROSE... [Concomitant]
  5. ACYCLOVIR [Concomitant]

REACTIONS (2)
  - Dyspnoea [None]
  - Unresponsive to stimuli [None]
